FAERS Safety Report 10078653 (Version 2)
Quarter: 2014Q2

REPORT INFORMATION
  Report Type: Spontaneous
  Country: US (occurrence: US)
  Receive Date: 20140415
  Receipt Date: 20140618
  Transmission Date: 20141212
  Serious: Yes (Other)
  Sender: FDA-Public Use
  Company Number: US-AMGEN-USASP2014026180

PATIENT
  Sex: Female

DRUGS (2)
  1. XGEVA [Suspect]
     Indication: METASTASES TO BONE
     Dosage: UNK
     Route: 065
  2. TAMOXIFEN [Concomitant]

REACTIONS (6)
  - Metastases to bone [Unknown]
  - Thoracic vertebral fracture [Unknown]
  - Neoplasm malignant [Unknown]
  - Bone pain [Unknown]
  - Muscle spasms [Unknown]
  - Pain [Unknown]
